FAERS Safety Report 10993911 (Version 3)
Quarter: 2015Q2

REPORT INFORMATION
  Report Type: Report from Study
  Country: JP (occurrence: JP)
  Receive Date: 20150407
  Receipt Date: 20150604
  Transmission Date: 20150821
  Serious: Yes (Hospitalization)
  Sender: FDA-Public Use
  Company Number: JP-ROCHE-1545381

PATIENT
  Age: 58 Year
  Sex: Male

DRUGS (60)
  1. BLINDED IBRUTINIB [Suspect]
     Active Substance: IBRUTINIB
     Indication: NON-HODGKIN^S LYMPHOMA UNSPECIFIED HISTOLOGY INDOLENT
     Route: 048
     Dates: start: 20141112, end: 20150209
  2. BLINDED IBRUTINIB [Suspect]
     Active Substance: IBRUTINIB
     Dosage: 17/MAR/2015 IBRUTINIB WAS INTERRUPTED
     Route: 048
     Dates: start: 20150310, end: 20150317
  3. TAKEPRON [Concomitant]
     Active Substance: LANSOPRAZOLE
     Indication: GASTROINTESTINAL ULCER
     Dosage: TAKEPRON (LANSOPRAZOLE) : 25 NOV 2014 / UNK (480 MG, DAILY, PO, GASTROINTESTINAL ULCERATION)
     Route: 048
     Dates: start: 20141125
  4. MYONAL (JAPAN) [Concomitant]
     Active Substance: EPERISONE HYDROCHLORIDE
     Indication: PERIARTHRITIS
     Route: 048
     Dates: start: 20141125
  5. SEROTONE [Concomitant]
     Active Substance: AZASETRON HYDROCHLORIDE
     Route: 042
     Dates: start: 20141211, end: 20141212
  6. SEROTONE [Concomitant]
     Active Substance: AZASETRON HYDROCHLORIDE
     Route: 042
     Dates: start: 20150108, end: 20150109
  7. MAGCOROL (JAPAN) [Concomitant]
     Route: 048
     Dates: start: 20150119, end: 20150119
  8. SOLDEM [Concomitant]
     Active Substance: DEXTROSE\POTASSIUM CHLORIDE\SODIUM CHLORIDE\SODIUM LACTATE
     Route: 042
     Dates: start: 20150320, end: 20150320
  9. CRAVIT [Concomitant]
     Active Substance: LEVOFLOXACIN
     Route: 048
     Dates: start: 20150212, end: 20150215
  10. GRAN [Concomitant]
     Active Substance: FILGRASTIM
     Indication: NEUTROPENIA
     Route: 058
     Dates: start: 20150209, end: 20150209
  11. TEGRETOL [Concomitant]
     Active Substance: CARBAMAZEPINE
     Route: 065
     Dates: start: 20150420
  12. TAMIFLU [Concomitant]
     Active Substance: OSELTAMIVIR PHOSPHATE
     Indication: PROPHYLAXIS
     Route: 048
     Dates: start: 20150121, end: 20150127
  13. BAKTAR [Concomitant]
     Active Substance: SULFAMETHOXAZOLE\TRIMETHOPRIM
     Indication: PREMEDICATION
     Dosage: BAKTAR (SULFAMETHOXAZOLE-TRIMETHOPRIM): 13 NOV 2014 / UNK (480 MG, DAILY, PO, PREMEDICATION OF INFEC
     Route: 048
     Dates: start: 20141113
  14. VENA [Concomitant]
     Active Substance: DIPHENHYDRAMINE HYDROCHLORIDE
     Route: 048
     Dates: start: 20141210, end: 20141210
  15. LAMISIL [Concomitant]
     Active Substance: TERBINAFINE HYDROCHLORIDE
     Indication: DRY SKIN
     Route: 061
     Dates: start: 20150323
  16. LEXAPRO [Concomitant]
     Active Substance: ESCITALOPRAM OXALATE
     Indication: BIPOLAR DISORDER
     Dosage: 20 MG, DAILY, PO, BIPOLAR DISORDER
     Route: 048
     Dates: start: 2014
  17. VENA [Concomitant]
     Active Substance: DIPHENHYDRAMINE HYDROCHLORIDE
     Route: 048
     Dates: start: 20150107, end: 20150107
  18. VOLTAREN [Concomitant]
     Active Substance: DICLOFENAC SODIUM
     Indication: PREMEDICATION
     Route: 048
     Dates: start: 20141112
  19. VOLTAREN [Concomitant]
     Active Substance: DICLOFENAC SODIUM
     Route: 048
     Dates: start: 20150107, end: 20150107
  20. SOLDEM [Concomitant]
     Active Substance: DEXTROSE\POTASSIUM CHLORIDE\SODIUM CHLORIDE\SODIUM LACTATE
     Route: 042
     Dates: start: 20150309, end: 20150310
  21. PRIMPERAN [Concomitant]
     Active Substance: METOCLOPRAMIDE HYDROCHLORIDE
     Route: 042
     Dates: start: 20141224, end: 20141224
  22. SOLU-CORTEF [Concomitant]
     Active Substance: HYDROCORTISONE SODIUM SUCCINATE
     Dosage: 100-200 MG
     Route: 042
     Dates: start: 20141210, end: 20141210
  23. ENSURE [Concomitant]
     Active Substance: AMINO ACIDS\DEXTROSE\ELECTROLYTES NOS\SOYBEAN OIL\VITAMINS
     Indication: DECREASED APPETITE
     Dosage: ELEMENTAL DIET
     Route: 048
     Dates: start: 20141210, end: 20150106
  24. RACOL [Concomitant]
     Active Substance: AMINO ACIDS\DEXTROSE\ELECTROLYTES NOS
     Indication: DECREASED APPETITE
     Dosage: ELEMENTAL DIET
     Route: 048
     Dates: start: 20141210, end: 20150106
  25. CRAVIT [Concomitant]
     Active Substance: LEVOFLOXACIN
     Indication: NEUTROPENIA
     Dosage: 1 DROP
     Route: 061
     Dates: start: 20150118, end: 20150122
  26. GRAN [Concomitant]
     Active Substance: FILGRASTIM
     Route: 058
     Dates: start: 20150212, end: 20150212
  27. GRAN [Concomitant]
     Active Substance: FILGRASTIM
     Route: 058
     Dates: start: 20150214, end: 20150214
  28. LULICON [Concomitant]
     Indication: DRY SKIN
     Route: 061
     Dates: start: 20150313, end: 20150322
  29. RITUXIMAB [Suspect]
     Active Substance: RITUXIMAB
     Dosage: DAY1 CYCLE 4
     Route: 042
     Dates: start: 20150304
  30. FEBURIC [Concomitant]
     Active Substance: FEBUXOSTAT
     Indication: HYPERURICAEMIA
     Dosage: FEBURIC (FEBUXOSTAT) : 13 NOV 2014 / UNK (10 MG, DAILY, PO, HYPERURICEMIA)
     Route: 048
     Dates: start: 20141113
  31. ADOAIR [Concomitant]
     Active Substance: FLUTICASONE PROPIONATE\SALMETEROL XINAFOATE
     Indication: PERIARTHRITIS
     Route: 065
     Dates: start: 20141125
  32. VOLTAREN [Concomitant]
     Active Substance: DICLOFENAC SODIUM
     Route: 048
     Dates: start: 20150304, end: 20150304
  33. LAXOBERON [Concomitant]
     Active Substance: SODIUM PICOSULFATE
     Route: 048
     Dates: start: 20150118, end: 20150119
  34. MOSAPRIDE CITRATE [Concomitant]
     Active Substance: MOSAPRIDE CITRATE
     Route: 048
     Dates: start: 20150118, end: 20150118
  35. SOLITA [Concomitant]
     Indication: DECREASED APPETITE
     Dosage: FLUID
     Route: 042
     Dates: start: 20141224, end: 20141226
  36. SOLITA [Concomitant]
     Indication: NAUSEA
     Dosage: FLUID
     Route: 042
     Dates: start: 20150302, end: 20150305
  37. ENSURE [Concomitant]
     Active Substance: AMINO ACIDS\DEXTROSE\ELECTROLYTES NOS\SOYBEAN OIL\VITAMINS
     Indication: WEIGHT DECREASED
  38. RACOL [Concomitant]
     Active Substance: AMINO ACIDS\DEXTROSE\ELECTROLYTES NOS
     Indication: WEIGHT DECREASED
  39. ZEFNART [Concomitant]
     Indication: DRY SKIN
     Route: 061
     Dates: start: 20150305, end: 20150322
  40. ASTAT (JAPAN) [Concomitant]
     Indication: DRY SKIN
     Route: 061
     Dates: start: 20150323
  41. RITUXIMAB [Suspect]
     Active Substance: RITUXIMAB
     Indication: NON-HODGKIN^S LYMPHOMA UNSPECIFIED HISTOLOGY INDOLENT
     Route: 042
     Dates: start: 20141112, end: 20150107
  42. BENDAMUSTINE HYDROCHLORIDE [Suspect]
     Active Substance: BENDAMUSTINE HYDROCHLORIDE
     Indication: NON-HODGKIN^S LYMPHOMA UNSPECIFIED HISTOLOGY INDOLENT
     Dosage: LAST DOSE- 09/JAN/2015
     Route: 042
     Dates: start: 20141112, end: 20150304
  43. VENA [Concomitant]
     Active Substance: DIPHENHYDRAMINE HYDROCHLORIDE
     Indication: PREMEDICATION
     Route: 048
     Dates: start: 20141112, end: 20141112
  44. VENA [Concomitant]
     Active Substance: DIPHENHYDRAMINE HYDROCHLORIDE
     Route: 048
     Dates: start: 20150304, end: 20150304
  45. SEROTONE [Concomitant]
     Active Substance: AZASETRON HYDROCHLORIDE
     Indication: PREMEDICATION
     Route: 042
     Dates: start: 20141113, end: 20141114
  46. MAGCOROL (JAPAN) [Concomitant]
     Route: 048
     Dates: start: 20150118, end: 20150118
  47. SOLU-CORTEF [Concomitant]
     Active Substance: HYDROCORTISONE SODIUM SUCCINATE
     Indication: INFUSION RELATED REACTION
     Route: 042
     Dates: start: 20141113, end: 20141113
  48. NOVAMIN (JAPAN) [Concomitant]
     Indication: NAUSEA
     Route: 048
     Dates: start: 201412, end: 201412
  49. CALONAL [Concomitant]
     Active Substance: ACETAMINOPHEN
     Indication: FEBRILE NEUTROPENIA
     Route: 048
     Dates: start: 20150214, end: 20150216
  50. ANTEBATE [Concomitant]
     Active Substance: BETAMETHASONE DIPROPIONATE
     Indication: DRY SKIN
     Route: 061
     Dates: start: 20150305
  51. SOLDEM [Concomitant]
     Active Substance: DEXTROSE\POTASSIUM CHLORIDE\SODIUM CHLORIDE\SODIUM LACTATE
     Route: 042
     Dates: start: 20150217, end: 20150218
  52. SOLDEM [Concomitant]
     Active Substance: DEXTROSE\POTASSIUM CHLORIDE\SODIUM CHLORIDE\SODIUM LACTATE
     Route: 042
     Dates: start: 20150312, end: 20150313
  53. ALLEGRA [Concomitant]
     Active Substance: FEXOFENADINE HYDROCHLORIDE
     Indication: DRY SKIN
     Route: 061
     Dates: start: 20150305, end: 20150322
  54. CERCINE [Concomitant]
     Active Substance: DIAZEPAM
     Indication: BIPOLAR DISORDER
     Route: 048
     Dates: start: 2014
  55. SOLITA [Concomitant]
     Indication: WEIGHT DECREASED
     Dosage: FLUID
     Route: 042
     Dates: start: 20141226, end: 20141226
  56. MIYA-BM [Concomitant]
     Active Substance: CLOSTRIDIUM BUTYRICUM SPORES STRAIN M-55
     Indication: DIARRHOEA
     Dosage: 1 TABLET
     Route: 048
     Dates: start: 20150223
  57. LOPERAMIDE HYDROCHLORIDE. [Concomitant]
     Active Substance: LOPERAMIDE HYDROCHLORIDE
     Indication: DIARRHOEA
     Route: 048
     Dates: start: 20150309, end: 20150315
  58. SOLDEM [Concomitant]
     Active Substance: DEXTROSE\POTASSIUM CHLORIDE\SODIUM CHLORIDE\SODIUM LACTATE
     Indication: FLUID REPLACEMENT
     Dosage: MAINTENANCE FLUID
     Route: 042
     Dates: start: 20150116, end: 20150216
  59. PRIMPERAN [Concomitant]
     Active Substance: METOCLOPRAMIDE HYDROCHLORIDE
     Indication: NAUSEA
     Route: 048
     Dates: start: 20141115
  60. SEROQUEL [Concomitant]
     Active Substance: QUETIAPINE FUMARATE

REACTIONS (2)
  - Bipolar disorder [Recovering/Resolving]
  - Thrombocytopenia [Recovering/Resolving]

NARRATIVE: CASE EVENT DATE: 20150216
